FAERS Safety Report 8478042-9 (Version None)
Quarter: 2012Q2

REPORT INFORMATION
  Report Type: 
  Country: None (occurrence: None)
  Receive Date: 20120625
  Receipt Date: 20120608
  Transmission Date: 20120825
  Serious: Yes (Hospitalization)
  Sender: FDA-Public Use
  Company Number: TPA2012A03446

PATIENT
  Sex: Male

DRUGS (1)
  1. PIOGLITAZONE HCL [Suspect]
     Indication: NON-ALCOHOLIC STEATOHEPATITIS

REACTIONS (4)
  - URINARY RETENTION [None]
  - BLADDER DISCOMFORT [None]
  - HEPATIC HAEMATOMA [None]
  - HYPOPNOEA [None]
